FAERS Safety Report 17273086 (Version 1)
Quarter: 2020Q1

REPORT INFORMATION
  Report Type: Spontaneous
  Country: JP (occurrence: JP)
  Receive Date: 20200115
  Receipt Date: 20200115
  Transmission Date: 20200409
  Serious: Yes (Hospitalization, Other)
  Sender: FDA-Public Use
  Company Number: JP-AMGEN-JPNSP2020004937

PATIENT
  Sex: Female

DRUGS (1)
  1. EVENITY [Suspect]
     Active Substance: ROMOSOZUMAB-AQQG
     Indication: PATHOLOGICAL FRACTURE PROPHYLAXIS
     Dosage: 210 MILLIGRAM
     Route: 058
     Dates: start: 20191226

REACTIONS (2)
  - Off label use [Unknown]
  - Sternal fracture [Unknown]

NARRATIVE: CASE EVENT DATE: 20191226
